FAERS Safety Report 8233600 (Version 3)
Quarter: 2013Q1

REPORT INFORMATION
  Report Type: Report from Study
  Country: FR (occurrence: FR)
  Receive Date: 20111107
  Receipt Date: 20130318
  Transmission Date: 20140127
  Serious: Yes (Death, Other)
  Sender: FDA-Public Use
  Company Number: FR-ASTELLAS-2011EU007660

PATIENT
  Age: 74 Year
  Sex: Male
  Weight: 58 kg

DRUGS (7)
  1. MICAFUNGIN INJECTION [Suspect]
     Indication: ANTIFUNGAL PROPHYLAXIS
     Dosage: 50 MG, UNKNOWN/D
     Route: 042
     Dates: start: 20110901, end: 20110908
  2. MICAFUNGIN INJECTION [Suspect]
     Indication: NEUTROPENIA
     Dosage: UNK
     Route: 042
  3. AMIKLIN [Concomitant]
     Indication: INFECTION
     Dosage: 1000 MG, UNKNOWN/D
     Route: 042
     Dates: start: 20110904
  4. TARGOCID [Concomitant]
     Indication: INFECTION
     Dosage: 400 MG, UNKNOWN/D
     Route: 042
     Dates: start: 20110821
  5. TIENAM [Concomitant]
     Indication: INFECTION
     Dosage: 1500 MG, UNKNOWN/D
     Route: 042
     Dates: start: 20110905
  6. GRANOCYTE [Concomitant]
     Indication: NEUTROPENIA
     Dosage: 34 IU, UNKNOWN/D
     Route: 058
     Dates: start: 20110820
  7. HEPARIN [Concomitant]
     Indication: THROMBOSIS PROPHYLAXIS
     Dosage: 5500 IU, UNKNOWN/D
     Route: 042
     Dates: start: 20110812

REACTIONS (2)
  - Drug ineffective [Unknown]
  - Bronchopulmonary aspergillosis [Fatal]
